FAERS Safety Report 26116355 (Version 1)
Quarter: 2025Q4

REPORT INFORMATION
  Report Type: Spontaneous
  Country: US (occurrence: None)
  Receive Date: 20251202
  Receipt Date: 20251202
  Transmission Date: 20260118
  Serious: Yes (Hospitalization)
  Sender: FDA-CTU
  Company Number: None

PATIENT
  Age: 79 Year
  Sex: Female

DRUGS (1)
  1. REPATHA [Suspect]
     Active Substance: EVOLOCUMAB
     Indication: Hypertriglyceridaemia
     Dosage: 140MG EVERY 2 WEEKS ?

REACTIONS (4)
  - Rhinorrhoea [None]
  - Asthma [None]
  - Pneumonia [None]
  - Cardiac failure [None]
